FAERS Safety Report 5232602-7 (Version None)
Quarter: 2007Q1

REPORT INFORMATION
  Report Type: 
  Country: None (occurrence: None)
  Receive Date: 20070206
  Receipt Date: 20070206
  Transmission Date: 20070707
  Serious: Yes (Hospitalization)
  Sender: FDA-Public Use
  Company Number: None

PATIENT
  Age: 77 Year
  Sex: Male
  Weight: 55.7924 kg

DRUGS (15)
  1. DIGOXIN [Suspect]
     Indication: CARDIAC FAILURE
     Dosage: 0.125 MG ONCE DAILY PO
     Route: 048
     Dates: start: 20051202, end: 20061031
  2. CARVEDILOL [Suspect]
     Indication: CARDIAC FAILURE
     Dosage: 3.125 MG TWICE DAILY PO
     Route: 048
     Dates: start: 20051202, end: 20061006
  3. ALBUTEROL [Concomitant]
  4. ALENDRONATE SODIUM [Concomitant]
  5. ASPIRIN [Concomitant]
  6. CALCIUM/VITAMIN D [Concomitant]
  7. FUROSEMIDE [Concomitant]
  8. HYDROXYZINE [Concomitant]
  9. LEVOTHYROXINE SODIUM [Concomitant]
  10. LORATADINE [Concomitant]
  11. POLYETHYLENE GLYCOL [Concomitant]
  12. SERTRALINE [Concomitant]
  13. SIMVASTATIN [Concomitant]
  14. NACL NASAL SPRAY [Concomitant]
  15. TRIAMCINOLONE ACETONIDE 0.1% OINTMENT [Concomitant]

REACTIONS (6)
  - BRADYCARDIA [None]
  - CHEST PAIN [None]
  - DYSPNOEA [None]
  - ELECTROCARDIOGRAM ABNORMAL [None]
  - OEDEMA PERIPHERAL [None]
  - TREATMENT NONCOMPLIANCE [None]
